FAERS Safety Report 5900222-4 (Version None)
Quarter: 2008Q3

REPORT INFORMATION
  Report Type: 
  Country: None (occurrence: None)
  Receive Date: 20080926
  Receipt Date: 20080919
  Transmission Date: 20090109
  Serious: Yes (Other)
  Sender: FDA-Public Use
  Company Number: US-JNJFOC-20080905287

PATIENT
  Sex: Male

DRUGS (1)
  1. SPORANOX [Suspect]
     Indication: CANDIDIASIS
     Route: 048

REACTIONS (2)
  - DENERVATION ATROPHY [None]
  - MUSCULAR WEAKNESS [None]
